FAERS Safety Report 9797593 (Version 3)
Quarter: 2014Q1

REPORT INFORMATION
  Report Type: Spontaneous
  Country: IT (occurrence: IT)
  Receive Date: 20140106
  Receipt Date: 20140120
  Transmission Date: 20141002
  Serious: Yes (Other)
  Sender: FDA-Public Use
  Company Number: IT-RANBAXY-2013RR-76491

PATIENT
  Age: 78 Year
  Sex: Female

DRUGS (4)
  1. LORAZEPAM [Suspect]
     Indication: DEPRESSION
     Dosage: 3 MG/DAY
     Route: 048
  2. LORAZEPAM [Suspect]
     Indication: ANXIETY
  3. CYMBALTA [Suspect]
     Indication: DEPRESSION
     Dosage: 30 MG/DAY
     Route: 048
  4. CYMBALTA [Suspect]
     Indication: ANXIETY

REACTIONS (4)
  - Hallucination, visual [Recovered/Resolved]
  - Rapid eye movements sleep abnormal [Recovered/Resolved]
  - Sleep disorder [Recovered/Resolved]
  - Nightmare [Recovered/Resolved]
